FAERS Safety Report 7938006-8 (Version None)
Quarter: 2011Q4

REPORT INFORMATION
  Report Type: 
  Country: None (occurrence: None)
  Receive Date: 20111123
  Receipt Date: 20111117
  Transmission Date: 20120403
  Serious: Yes (Hospitalization)
  Sender: FDA-Public Use
  Company Number: BR-US-EMD SERONO, INC.-7096905

PATIENT
  Sex: Female

DRUGS (4)
  1. CITALOPRAM HYDROBROMIDE [Concomitant]
  2. TRYPTANOL (AMITRIPTYLINE) [Concomitant]
  3. ACETAMINOPHEN W/ CODEINE [Concomitant]
  4. REBIF [Suspect]
     Indication: RELAPSING-REMITTING MULTIPLE SCLEROSIS
     Dates: start: 20090701

REACTIONS (3)
  - NEURALGIA [None]
  - PAIN [None]
  - VITAMIN D DEFICIENCY [None]
